FAERS Safety Report 18478412 (Version 4)
Quarter: 2023Q4

REPORT INFORMATION
  Report Type: Spontaneous
  Country: US (occurrence: US)
  Receive Date: 20201109
  Receipt Date: 20231008
  Transmission Date: 20240110
  Serious: Yes (Death, Hospitalization, Other)
  Sender: FDA-Public Use
  Company Number: US-BOEHRINGERINGELHEIM-2020-BI-059687

PATIENT
  Age: 53 Year
  Sex: Female
  Weight: 103 kg

DRUGS (22)
  1. PRADAXA [Suspect]
     Active Substance: DABIGATRAN ETEXILATE MESYLATE
     Indication: Pulmonary embolism
     Route: 048
     Dates: start: 20171212
  2. NEURONTIN [Concomitant]
     Active Substance: GABAPENTIN
     Indication: Product used for unknown indication
     Route: 048
  3. NEURONTIN [Concomitant]
     Active Substance: GABAPENTIN
     Route: 048
  4. NEURONTIN [Concomitant]
     Active Substance: GABAPENTIN
     Route: 048
  5. LIPITOR [Concomitant]
     Active Substance: ATORVASTATIN CALCIUM
     Indication: Product used for unknown indication
     Route: 048
  6. HYDROCHLOROTHIAZIDE [Concomitant]
     Active Substance: HYDROCHLOROTHIAZIDE
     Indication: Product used for unknown indication
     Route: 048
  7. Valproic Acid (DEPAKENE) [Concomitant]
     Indication: Product used for unknown indication
     Dosage: 4 CAPSULES
     Route: 048
  8. PROZAC [Concomitant]
     Active Substance: FLUOXETINE HYDROCHLORIDE
     Indication: Product used for unknown indication
     Dosage: 4 CAPSULES
     Route: 048
  9. buPROPion (WELLBUTRIN SR) [Concomitant]
     Indication: Product used for unknown indication
     Route: 048
  10. Levothyroxine (LEVOTHROID/SYNTHROID) [Concomitant]
     Indication: Product used for unknown indication
     Route: 048
  11. LATUDA [Concomitant]
     Active Substance: LURASIDONE HYDROCHLORIDE
     Indication: Product used for unknown indication
     Route: 048
  12. PROTONIX [Concomitant]
     Active Substance: PANTOPRAZOLE SODIUM
     Indication: Product used for unknown indication
     Dosage: 30 MINUTES BEFORE BREAKFAST
     Route: 048
  13. ABILIFY [Concomitant]
     Active Substance: ARIPIPRAZOLE
     Indication: Product used for unknown indication
     Route: 048
  14. Propranolol (INDERAL) [Concomitant]
     Indication: Product used for unknown indication
     Dosage: 2 TABLETS
     Route: 048
  15. Hyoscyamine (LEVSIN SL) [Concomitant]
     Indication: Irritable bowel syndrome
     Dosage: DISSOLVE 1 TABLET UNDER THE TONGUE 4 TIMES A DAY BEFORE MEALS?AND AT BEDTIME AS NEEDED FOR IRRITABLE
     Route: 060
  16. Sulfacetamide-Sulfur (ROSANIL) [Concomitant]
     Indication: Product used for unknown indication
     Dosage: 10-5 % (W/W) TOP CLSR WASH AFFECTED AREA(S) DAILY AS DIRECTED
  17. LOVENOX [Concomitant]
     Active Substance: ENOXAPARIN SODIUM
     Indication: Product used for unknown indication
     Dosage: 120 MG/0.8 ML; INJECT 0.8 ML SUBCUTANEOUSLY EVERY 12 HOURS FOR 4 MORE DAYS AFTER RECEIVING YOUR?MORN
     Route: 058
  18. Cefadroxil (DURICEF) [Concomitant]
     Indication: Product used for unknown indication
     Route: 048
  19. CYCLOBENZAPRINE [Concomitant]
     Active Substance: CYCLOBENZAPRINE
     Indication: Muscle spasms
     Dosage: TAKE 1 TABLET BY MOUTH 3 TIMES A DAY AS NEEDED
     Route: 048
  20. ZYLOPRIM [Concomitant]
     Active Substance: ALLOPURINOL
     Indication: Product used for unknown indication
     Route: 048
  21. SINGULAIR [Concomitant]
     Active Substance: MONTELUKAST SODIUM
     Indication: Product used for unknown indication
     Route: 048
  22. Dicyclomine (BENTYL) [Concomitant]
     Route: 048

REACTIONS (6)
  - Interstitial lung disease [Fatal]
  - Acute respiratory failure [Fatal]
  - Multiple organ dysfunction syndrome [Fatal]
  - Sepsis [Fatal]
  - Gastrooesophageal reflux disease [Unknown]
  - Haematochezia [Unknown]

NARRATIVE: CASE EVENT DATE: 20180206
